FAERS Safety Report 11037703 (Version 1)
Quarter: 2015Q2

REPORT INFORMATION
  Report Type: Spontaneous
  Country: US (occurrence: None)
  Receive Date: 20150415
  Receipt Date: 20150415
  Transmission Date: 20150821
  Serious: Yes (Disabling)
  Sender: FDA-Public Use
  Company Number: None

PATIENT
  Age: 27 Year
  Sex: Female
  Weight: 56.7 kg

DRUGS (5)
  1. VITAMIN C [Concomitant]
     Active Substance: ASCORBIC ACID
  2. CIPRO [Suspect]
     Active Substance: CIPROFLOXACIN HYDROCHLORIDE
     Indication: URINARY TRACT INFECTION
     Dosage: 1 PILL
     Route: 048
     Dates: start: 20141011, end: 20141014
  3. PROBIOTICS [Concomitant]
     Active Substance: PROBIOTICS NOS
  4. VITAMIN B [Concomitant]
     Active Substance: VITAMIN B
  5. MAGNESIUM [Concomitant]
     Active Substance: MAGNESIUM

REACTIONS (15)
  - Asthenia [None]
  - Sensory disturbance [None]
  - Migraine [None]
  - Pyrexia [None]
  - Pain [None]
  - Burning sensation [None]
  - Muscle atrophy [None]
  - Neuralgia [None]
  - Tremor [None]
  - Tendon disorder [None]
  - Muscle spasms [None]
  - Paraesthesia [None]
  - Activities of daily living impaired [None]
  - Gait disturbance [None]
  - Neuropathy peripheral [None]

NARRATIVE: CASE EVENT DATE: 20141011
